FAERS Safety Report 9859181 (Version 1)
Quarter: 2014Q1

REPORT INFORMATION
  Report Type: Spontaneous
  Country: US (occurrence: None)
  Receive Date: 20140129
  Receipt Date: 20140129
  Transmission Date: 20141002
  Serious: Yes (Other)
  Sender: FDA-Public Use
  Company Number: 2014-US-000597

PATIENT
  Age: 24 Year
  Sex: Female

DRUGS (2)
  1. XYREM (SODIUM OXYBATE) ORAL SOLUTION, 500MG/ML [Suspect]
     Indication: PRODUCT USED FOR UNKNOWN INDICATION
     Dosage: 4.5 GM, FIRST DOSE, ORAL
     Route: 048
     Dates: start: 201003
  2. TOPAMAX (TOPIRAMATE) [Suspect]

REACTIONS (3)
  - Bipolar disorder [None]
  - Somnolence [None]
  - Fatigue [None]
